FAERS Safety Report 10952973 (Version 1)
Quarter: 2015Q1

REPORT INFORMATION
  Report Type: Spontaneous
  Country: US (occurrence: US)
  Receive Date: 20150325
  Receipt Date: 20150325
  Transmission Date: 20150721
  Serious: Yes (Other)
  Sender: FDA-Public Use
  Company Number: US-PFIZER INC-2015102634

PATIENT
  Sex: Female

DRUGS (1)
  1. XANAX [Suspect]
     Active Substance: ALPRAZOLAM
     Indication: ANXIETY
     Dosage: 0.25 MG, DAILY (1 TABLET A DAY)
     Dates: end: 20150320

REACTIONS (2)
  - Malaise [Unknown]
  - Coeliac disease [Unknown]

NARRATIVE: CASE EVENT DATE: 2013
